FAERS Safety Report 11530121 (Version 1)
Quarter: 2015Q3

REPORT INFORMATION
  Report Type: Spontaneous
  Country: US (occurrence: None)
  Receive Date: 20150918
  Receipt Date: 20150918
  Transmission Date: 20151125
  Serious: Yes (Other)
  Sender: FDA-Public Use
  Company Number: None

PATIENT
  Age: 63 Year
  Sex: Female
  Weight: 106 kg

DRUGS (6)
  1. LIDOCAINE. [Concomitant]
     Active Substance: LIDOCAINE
  2. DOPAMINE [Concomitant]
     Active Substance: DOPAMINE\DOPAMINE HYDROCHLORIDE
  3. HEPARIN 1000 U/ML FRESENIUS KABI [Suspect]
     Active Substance: HEPARIN SODIUM
     Indication: ANTICOAGULANT THERAPY
     Dosage: 7000 UNITS  ONE TIME INTRAVENOUS
     Route: 042
     Dates: start: 20150522, end: 20150522
  4. DOBUTAMINE [Concomitant]
     Active Substance: DOBUTAMINE\DOBUTAMINE HYDROCHLORIDE
  5. EPINEPHRINE. [Concomitant]
     Active Substance: EPINEPHRINE
  6. NITROGLYCERINE [Concomitant]
     Active Substance: NITROGLYCERIN

REACTIONS (3)
  - Coagulopathy [None]
  - Product quality issue [None]
  - Post procedural haemorrhage [None]

NARRATIVE: CASE EVENT DATE: 20150522
